FAERS Safety Report 10159413 (Version 1)
Quarter: 2014Q2

REPORT INFORMATION
  Report Type: Spontaneous
  Country: GB (occurrence: GB)
  Receive Date: 20140508
  Receipt Date: 20140508
  Transmission Date: 20141212
  Serious: Yes (Other)
  Sender: FDA-Public Use
  Company Number: GB-DRREDDYS-GER/UKI/14/0040098

PATIENT
  Sex: 0

DRUGS (1)
  1. TERBINAFINE [Suspect]
     Indication: NAIL INFECTION
     Dates: start: 20140415, end: 20140415

REACTIONS (3)
  - Swelling face [Not Recovered/Not Resolved]
  - Skin exfoliation [Not Recovered/Not Resolved]
  - Blister [Not Recovered/Not Resolved]
